FAERS Safety Report 8214332-2 (Version None)
Quarter: 2012Q1

REPORT INFORMATION
  Report Type: 
  Country: None (occurrence: None)
  Receive Date: 20120316
  Receipt Date: 20120308
  Transmission Date: 20120608
  Serious: Yes (Hospitalization)
  Sender: FDA-Public Use
  Company Number: US-BAYER-2012-023985

PATIENT
  Age: 37 Year
  Sex: Female
  Weight: 77.37 kg

DRUGS (5)
  1. DROSPIRENONE AND ETHINYL ESTRADIOL [Suspect]
     Dosage: UNK
  2. FAMCICLOVIR [Concomitant]
     Indication: ANTIVIRAL TREATMENT
     Dosage: 500 MG, UNK
  3. YASMIN [Suspect]
  4. NASONEX [Concomitant]
     Indication: RHINITIS ALLERGIC
  5. YAZ [Suspect]

REACTIONS (1)
  - PULMONARY EMBOLISM [None]
